FAERS Safety Report 7139240-X (Version None)
Quarter: 2010Q4

REPORT INFORMATION
  Report Type: 
  Country: None (occurrence: None)
  Receive Date: 20101206
  Receipt Date: 20101129
  Transmission Date: 20110411
  Serious: Yes (Hospitalization)
  Sender: FDA-Public Use
  Company Number: US-ROCHE-744712

PATIENT
  Sex: Female
  Weight: 58.5 kg

DRUGS (10)
  1. RIBAVIRIN [Suspect]
     Dosage: 600 MG IN MORNING AND 400 MG IN EVENING
     Route: 048
     Dates: start: 20100723
  2. PF-00868554 (HCV POLYMERASE INHIBITOR) [Suspect]
     Indication: HEPATITIS C
     Route: 048
  3. PEGASYS [Concomitant]
     Dates: start: 20100723
  4. LISINOPRIL AND HYDROCHLOROTHIAZIDE [Concomitant]
  5. METFORMIN [Concomitant]
     Dates: start: 20091216
  6. GLIPIZIDE [Concomitant]
     Dates: start: 20091216
  7. PROMETHAZINE [Concomitant]
  8. BENADRYL [Concomitant]
     Dates: start: 20100820
  9. ULTRAM [Concomitant]
     Dates: start: 20100820
  10. XANAX [Concomitant]
     Dates: start: 20100917

REACTIONS (1)
  - VERTIGO [None]
